FAERS Safety Report 6714587-7 (Version None)
Quarter: 2010Q2

REPORT INFORMATION
  Report Type: 
  Country: None (occurrence: None)
  Receive Date: 20100507
  Receipt Date: 20100428
  Transmission Date: 20101027
  Serious: Yes (Hospitalization)
  Sender: FDA-Public Use
  Company Number: US-BIOGENIDEC-2008BI029918

PATIENT
  Age: 49 Year
  Sex: Female

DRUGS (1)
  1. AVONEX [Suspect]
     Indication: MULTIPLE SCLEROSIS
     Route: 030
     Dates: start: 19961221

REACTIONS (5)
  - ARTHRITIS [None]
  - BACK PAIN [None]
  - LUMBAR RADICULOPATHY [None]
  - LUMBAR SPINAL STENOSIS [None]
  - SPONDYLOLISTHESIS [None]
